FAERS Safety Report 7865950-2 (Version None)
Quarter: 2011Q4

REPORT INFORMATION
  Report Type: 
  Country: None (occurrence: None)
  Receive Date: 20111028
  Receipt Date: 20110324
  Transmission Date: 20120403
  Serious: No
  Sender: FDA-Public Use
  Company Number: US-GLAXOSMITHKLINE-A0919842A

PATIENT
  Age: 44 Year
  Sex: Male

DRUGS (8)
  1. VALIUM [Concomitant]
  2. COMBIVENT [Concomitant]
  3. AMBIEN [Concomitant]
  4. SKELAXIN [Concomitant]
  5. KLONOPIN [Concomitant]
  6. ADVAIR DISKUS 100/50 [Suspect]
     Indication: ASTHMA
     Dosage: 1PUFF TWICE PER DAY
     Route: 055
     Dates: start: 20020101
  7. TRAZODONE HYDROCHLORIDE [Concomitant]
  8. OXYCONTIN [Concomitant]

REACTIONS (4)
  - INHALATION THERAPY [None]
  - DYSPNOEA [None]
  - DRUG INEFFECTIVE [None]
  - PRODUCT QUALITY ISSUE [None]
